FAERS Safety Report 9257118 (Version 2)
Quarter: 2013Q2

REPORT INFORMATION
  Report Type: Spontaneous
  Country: US (occurrence: None)
  Receive Date: 20130424
  Receipt Date: 20130424
  Transmission Date: 20140414
  Serious: Yes (Other)
  Sender: FDA-Public Use
  Company Number: JPI-P-020978

PATIENT
  Age: 22 Year
  Sex: Female
  Weight: 52.62 kg

DRUGS (14)
  1. XYREM [Suspect]
     Indication: HYPERSOMNIA
     Dosage: 6 GM (3 GM,2 IN 1 D),ORAL
     Route: 048
     Dates: start: 20091022
  2. ACETYLSALICYLIC ACID [Concomitant]
  3. LEVETIRACETAM [Suspect]
  4. DULOXETINE HYDROCHLORIDE [Concomitant]
  5. LUBIPROSTONE [Concomitant]
  6. PROPRANOLOL [Concomitant]
  7. LEVONORGESTREL AND ETHINYL ESTRADIOL [Concomitant]
  8. DEXLANSOPRAZOLE [Concomitant]
  9. MULTIVITAMINS [Concomitant]
  10. HYOSCYAMINE [Concomitant]
  11. SUMATRIPTAN [Concomitant]
  12. CETIRIZINE HYDROCHLORIDE [Concomitant]
  13. MAGNESIUM [Concomitant]
  14. LEVOTHYROXINE [Concomitant]

REACTIONS (6)
  - Pseudomonas infection [None]
  - Rectocele [None]
  - Hymenectomy [None]
  - Endometriosis [None]
  - Eye irritation [None]
  - Arthropathy [None]
